FAERS Safety Report 4398155-0 (Version None)
Quarter: 2004Q3

REPORT INFORMATION
  Report Type: 
  Country: None (occurrence: None)
  Receive Date: 20040713
  Receipt Date: 20040629
  Transmission Date: 20050211
  Serious: Yes (Death, Other)
  Sender: FDA-Public Use
  Company Number: 2004219506CA

PATIENT
  Age: 61 Year
  Sex: Male
  Weight: 54 kg

DRUGS (7)
  1. CAMPTOSAR [Suspect]
     Indication: SMALL CELL LUNG CANCER RECURRENT
     Dosage: 60 MG/M2, CYCLIC , IV
     Route: 042
     Dates: start: 20040105, end: 20040105
  2. CISPLATIN [Suspect]
     Indication: SMALL CELL LUNG CANCER RECURRENT
     Dosage: 60 MG/M2, CYCLIC, IV
     Route: 042
     Dates: start: 20040105, end: 20040105
  3. MORPHINE SULFATE [Concomitant]
  4. PROCHLORPERAZINE MESILATE (PROCHLORPERAZINE MESILATE) [Concomitant]
  5. ONDANSETRON HCL [Concomitant]
  6. MORPHINE SULFATE [Concomitant]
  7. DECADRON [Concomitant]

REACTIONS (7)
  - CARDIAC ARREST [None]
  - LOSS OF CONSCIOUSNESS [None]
  - RESPIRATORY ARREST [None]
  - RESPIRATORY RATE INCREASED [None]
  - SUDDEN DEATH [None]
  - VENTRICULAR FIBRILLATION [None]
  - VOMITING [None]
